FAERS Safety Report 18212425 (Version 1)
Quarter: 2020Q3

REPORT INFORMATION
  Report Type: Spontaneous
  Country: US (occurrence: US)
  Receive Date: 20200831
  Receipt Date: 20200831
  Transmission Date: 20201103
  Serious: No
  Sender: FDA-Public Use
  Company Number: US-SA-2020SA232704

PATIENT

DRUGS (1)
  1. DUPIXENT [Suspect]
     Active Substance: DUPILUMAB
     Indication: DERMATITIS ATOPIC
     Dosage: UNK
     Dates: start: 202008

REACTIONS (4)
  - Pain [Unknown]
  - Psoriasis [Unknown]
  - Skin exfoliation [Unknown]
  - Abscess [Unknown]

NARRATIVE: CASE EVENT DATE: 202008
